FAERS Safety Report 25525312 (Version 2)
Quarter: 2025Q3

REPORT INFORMATION
  Report Type: Spontaneous
  Country: US (occurrence: US)
  Receive Date: 20250707
  Receipt Date: 20250806
  Transmission Date: 20251020
  Serious: No
  Sender: SANOFI AVENTIS
  Company Number: US-SA-2025SA190044

PATIENT
  Age: 11 Year
  Sex: Male

DRUGS (1)
  1. ALTUVIIIO [Suspect]
     Active Substance: EFANESOCTOCOG ALFA
     Indication: Haemorrhage prophylaxis
     Route: 065

REACTIONS (2)
  - Mouth haemorrhage [Unknown]
  - Ear infection [Unknown]

NARRATIVE: CASE EVENT DATE: 20250703
